FAERS Safety Report 9096738 (Version 3)
Quarter: 2013Q1

REPORT INFORMATION
  Report Type: Spontaneous
  Country: JP (occurrence: JP)
  Receive Date: 20130211
  Receipt Date: 20130314
  Transmission Date: 20140127
  Serious: Yes (Life-Threatening, Hospitalization, Other)
  Sender: FDA-Public Use
  Company Number: JP-ELI_LILLY_AND_COMPANY-JP201302000546

PATIENT
  Age: 44 Year
  Sex: Female
  Weight: 56 kg

DRUGS (12)
  1. ZYPREXA [Suspect]
     Indication: DEPRESSION
     Dosage: 5 MG, EACH EVENING
     Route: 048
     Dates: end: 20130106
  2. ZYPREXA [Suspect]
     Dosage: UNK
     Route: 045
     Dates: start: 20130206
  3. ZYPREXA [Suspect]
     Dosage: 5 MG, EACH EVENING
     Route: 048
  4. DEPROMEL [Concomitant]
     Dosage: 50 MG, EACH EVENING
     Route: 048
     Dates: end: 20130106
  5. DEPROMEL [Concomitant]
     Dosage: UNK
     Route: 045
     Dates: start: 20130122
  6. DEPROMEL [Concomitant]
     Dosage: 50 MG, EACH EVENING
     Route: 048
  7. ROHYPNOL [Concomitant]
     Dosage: 1 MG, EACH EVENING
     Route: 048
     Dates: end: 20130106
  8. ROHYPNOL [Concomitant]
     Dosage: UNK
     Route: 045
     Dates: start: 20130122
  9. ROHYPNOL [Concomitant]
     Dosage: 1 MG, EACH EVENING
     Route: 048
  10. MYSLEE [Concomitant]
     Dosage: 10 MG, EACH EVENING
     Route: 048
     Dates: end: 20130106
  11. MYSLEE [Concomitant]
     Dosage: UNK
     Route: 045
     Dates: start: 20130122
  12. MYSLEE [Concomitant]
     Dosage: 10 MG, EACH EVENING
     Route: 048

REACTIONS (5)
  - Suicide attempt [Recovered/Resolved with Sequelae]
  - Multiple injuries [Recovering/Resolving]
  - Cerebral infarction [Recovered/Resolved with Sequelae]
  - Off label use [Not Recovered/Not Resolved]
  - Incorrect route of drug administration [Recovered/Resolved]
